FAERS Safety Report 18968572 (Version 1)
Quarter: 2021Q1

REPORT INFORMATION
  Report Type: Spontaneous
  Country: US (occurrence: US)
  Receive Date: 20210304
  Receipt Date: 20210304
  Transmission Date: 20210420
  Serious: No
  Sender: FDA-Public Use
  Company Number: US-TAKEDA-2021TUS012057

PATIENT
  Sex: Male
  Weight: 79.37 kg

DRUGS (17)
  1. EPINEPHRINE. [Concomitant]
     Active Substance: EPINEPHRINE
  2. ATORVASTATIN [Concomitant]
     Active Substance: ATORVASTATIN
  3. SYMBICORT [Concomitant]
     Active Substance: BUDESONIDE\FORMOTEROL FUMARATE DIHYDRATE
  4. NEXIUM I.V. [Concomitant]
     Active Substance: ESOMEPRAZOLE SODIUM
  5. IPRATROPIUM/ALBUTEROL [Concomitant]
     Active Substance: ALBUTEROL\IPRATROPIUM
  6. DIPHENHYDRAMINE. [Concomitant]
     Active Substance: DIPHENHYDRAMINE
  7. ACETAMINOPHEN. [Concomitant]
     Active Substance: ACETAMINOPHEN
  8. CALCIUM 600 + D3 PLUS MINERALS [Concomitant]
  9. AUGMENTIN [Concomitant]
     Active Substance: AMOXICILLIN\CLAVULANATE POTASSIUM
  10. VENTOLIN [Concomitant]
     Active Substance: ALBUTEROL SULFATE
  11. NUCALA [Concomitant]
     Active Substance: MEPOLIZUMAB
  12. OCEAN SALINE NASAL SPRAY [Concomitant]
     Active Substance: SODIUM CHLORIDE
  13. HYQVIA [Suspect]
     Active Substance: HUMAN IMMUNOGLOBULIN G\HYALURONIDASE RECOMBINANT HUMAN
     Dosage: 65 GRAM, Q4WEEKS
     Route: 058
     Dates: start: 20160719
  14. NORMAL SALINE [Concomitant]
     Active Substance: SODIUM CHLORIDE
  15. LIDOCAINE. [Concomitant]
     Active Substance: LIDOCAINE
  16. NORVASC [Concomitant]
     Active Substance: AMLODIPINE BESYLATE
  17. ASPIRIN (E.C.) [Concomitant]
     Active Substance: ASPIRIN

REACTIONS (2)
  - Injection site extravasation [Unknown]
  - Injection site haemorrhage [Unknown]
